FAERS Safety Report 19490202 (Version 6)
Quarter: 2022Q1

REPORT INFORMATION
  Report Type: Spontaneous
  Country: US (occurrence: US)
  Receive Date: 20210705
  Receipt Date: 20220117
  Transmission Date: 20220423
  Serious: No
  Sender: FDA-Public Use
  Company Number: US-TEVA-2021-US-1926355

PATIENT
  Age: 75 Year
  Sex: Female

DRUGS (2)
  1. NYSTATIN [Suspect]
     Active Substance: NYSTATIN
     Indication: Fungal infection
     Dosage: 100000 UNITS/G
     Route: 065
     Dates: start: 20210519, end: 20210526
  2. MUPIROCIN [Suspect]
     Active Substance: MUPIROCIN
     Route: 065

REACTIONS (11)
  - Erythema [Not Recovered/Not Resolved]
  - Drug ineffective [Unknown]
  - Dermatitis [Not Recovered/Not Resolved]
  - Rash macular [Unknown]
  - Rash [Not Recovered/Not Resolved]
  - Sensitive skin [Unknown]
  - Swelling face [Recovered/Resolved]
  - Frustration tolerance decreased [Unknown]
  - Swelling face [Unknown]
  - Dermatitis [Unknown]
  - Discomfort [Unknown]

NARRATIVE: CASE EVENT DATE: 20210101
